FAERS Safety Report 4562153-4 (Version None)
Quarter: 2005Q1

REPORT INFORMATION
  Report Type: 
  Country: None (occurrence: None)
  Receive Date: 20050125
  Receipt Date: 20050112
  Transmission Date: 20050727
  Serious: Yes (Hospitalization)
  Sender: FDA-Public Use
  Company Number: 2004-BP-09241BP

PATIENT
  Sex: Male

DRUGS (3)
  1. AGGRENOX [Suspect]
     Indication: CEREBROVASCULAR ACCIDENT PROPHYLAXIS
     Dosage: SEE TEXT (SEE TEXT, 25 MG/200 MG 1 CAPSULE BID), PO
     Route: 048
     Dates: start: 20020522
  2. FLOMAX [Suspect]
     Dosage: 1 CAPSULE DAILY)
     Dates: start: 19970101
  3. CELEBREX [Concomitant]

REACTIONS (8)
  - AGGRESSION [None]
  - CONFUSIONAL STATE [None]
  - DEMENTIA [None]
  - FALL [None]
  - PARANOIA [None]
  - PATELLA FRACTURE [None]
  - STAPHYLOCOCCAL INFECTION [None]
  - TRANSIENT ISCHAEMIC ATTACK [None]
